FAERS Safety Report 7660778-0 (Version None)
Quarter: 2011Q3

REPORT INFORMATION
  Report Type: 
  Country: None (occurrence: None)
  Receive Date: 20110805
  Receipt Date: 20101108
  Transmission Date: 20111222
  Serious: No
  Sender: FDA-Public Use
  Company Number: US-ABBOTT-10P-163-0683922-00

PATIENT
  Sex: Male
  Weight: 89.438 kg

DRUGS (5)
  1. NIASPAN [Suspect]
     Indication: LOW DENSITY LIPOPROTEIN INCREASED
     Dates: start: 20100101, end: 20100701
  2. NIASPAN [Suspect]
     Indication: BLOOD TRIGLYCERIDES
     Dates: start: 20100801
  3. NIASPAN [Suspect]
     Indication: BLOOD CHOLESTEROL INCREASED
  4. MIRAPEX [Concomitant]
     Indication: PRODUCT USED FOR UNKNOWN INDICATION
  5. ASPIRIN [Concomitant]
     Indication: PRODUCT USED FOR UNKNOWN INDICATION
     Dosage: IN THE AFTERNOON

REACTIONS (5)
  - PARAESTHESIA [None]
  - BLOOD GLUCOSE INCREASED [None]
  - FLUSHING [None]
  - SKIN BURNING SENSATION [None]
  - MUSCLE SPASMS [None]
